FAERS Safety Report 8731494 (Version 2)
Quarter: 2012Q4

REPORT INFORMATION
  Report Type: 
  Country: IT (occurrence: IT)
  Receive Date: 20120820
  Receipt Date: 20120910
  Transmission Date: 20130627
  Serious: Yes (Disabling)
  Sender: FDA-Public Use
  Company Number: PHHY2012IT071070

PATIENT
  Age: 70 Year
  Sex: Male

DRUGS (1)
  1. ZOMETA [Suspect]
     Dosage: 4 mg,
     Route: 042
     Dates: start: 20100101, end: 20120531

REACTIONS (3)
  - Sinusitis [Recovering/Resolving]
  - Osteonecrosis of jaw [Recovering/Resolving]
  - Exposed bone in jaw [Recovering/Resolving]
